FAERS Safety Report 6213209-1 (Version None)
Quarter: 2009Q2

REPORT INFORMATION
  Report Type: 
  Country: None (occurrence: None)
  Receive Date: 20090529
  Receipt Date: 20080903
  Transmission Date: 20091009
  Serious: Yes (Other)
  Sender: FDA-Public Use
  Company Number: US-DSA_62275_2008

PATIENT
  Sex: Female

DRUGS (1)
  1. MYSOLINE [Suspect]
     Indication: DRUG USE FOR UNKNOWN INDICATION
     Dosage: PO
     Route: 048

REACTIONS (2)
  - ADVERSE DRUG REACTION [None]
  - FEELING ABNORMAL [None]
